FAERS Safety Report 6591824-3 (Version None)
Quarter: 2010Q1

REPORT INFORMATION
  Report Type: 
  Country: None (occurrence: None)
  Receive Date: 20100221
  Receipt Date: 20091009
  Transmission Date: 20100710
  Serious: No
  Sender: FDA-Public Use
  Company Number: US-ALLERGAN-0908421US

PATIENT
  Age: 56 Year
  Sex: Female
  Weight: 57.596 kg

DRUGS (5)
  1. BOTOX COSMETIC [Suspect]
     Indication: SKIN WRINKLING
     Dosage: 45 UNITS, SINGLE
     Route: 030
     Dates: start: 20090605, end: 20090605
  2. EFFEXOR [Concomitant]
  3. KLONOPIN [Concomitant]
     Dosage: UNK, PRN
  4. THYROID TAB [Concomitant]
  5. LEXAPRO [Concomitant]

REACTIONS (2)
  - EYELID PTOSIS [None]
  - WRONG TECHNIQUE IN DRUG USAGE PROCESS [None]
